FAERS Safety Report 18800526 (Version 1)
Quarter: 2021Q1

REPORT INFORMATION
  Report Type: Spontaneous
  Country: US (occurrence: US)
  Receive Date: 20210128
  Receipt Date: 20210128
  Transmission Date: 20210419
  Serious: No
  Sender: FDA-Public Use
  Company Number: US-ABBVIE-20K-163-3421150-00

PATIENT
  Sex: Male

DRUGS (1)
  1. LUPRON DEPOT [Suspect]
     Active Substance: LEUPROLIDE ACETATE
     Indication: PROSTATE CANCER
     Route: 065

REACTIONS (7)
  - Dry mouth [Unknown]
  - Feeling cold [Unknown]
  - Prostatic specific antigen increased [Unknown]
  - Pain in extremity [Unknown]
  - Headache [Unknown]
  - Petechiae [Unknown]
  - Feeling hot [Unknown]
